FAERS Safety Report 6852623-8 (Version None)
Quarter: 2010Q3

REPORT INFORMATION
  Report Type: 
  Country: None (occurrence: None)
  Receive Date: 20100717
  Receipt Date: 20080301
  Transmission Date: 20110219
  Serious: No
  Sender: FDA-Public Use
  Company Number: US-PFIZER INC-2007096777

PATIENT
  Sex: Female
  Weight: 78.9 kg

DRUGS (4)
  1. CHANTIX [Suspect]
     Indication: SMOKING CESSATION THERAPY
     Dates: start: 20071105
  2. PERCOCET [Concomitant]
  3. VICODIN [Concomitant]
  4. TEMAZEPAM [Concomitant]

REACTIONS (5)
  - DIARRHOEA [None]
  - DYSPEPSIA [None]
  - FLATULENCE [None]
  - INFLUENZA LIKE ILLNESS [None]
  - MALAISE [None]
